FAERS Safety Report 12421346 (Version 1)
Quarter: 2016Q2

REPORT INFORMATION
  Report Type: Spontaneous
  Country: GB (occurrence: GB)
  Receive Date: 20160531
  Receipt Date: 20160531
  Transmission Date: 20160815
  Serious: Yes (Other)
  Sender: FDA-Public Use
  Company Number: GB-JNJFOC-20160520779

PATIENT
  Age: 37 Year
  Sex: Female

DRUGS (1)
  1. OXYBUTYNIN [Suspect]
     Active Substance: OXYBUTYNIN
     Indication: PRODUCT USED FOR UNKNOWN INDICATION
     Route: 048
     Dates: start: 20160422, end: 20160424

REACTIONS (6)
  - Exposure during pregnancy [Not Recovered/Not Resolved]
  - Syncope [Unknown]
  - Incorrect dose administered [Unknown]
  - Drug dispensing error [Unknown]
  - Loss of consciousness [Unknown]
  - Hypotension [Recovered/Resolved]

NARRATIVE: CASE EVENT DATE: 20160422
